FAERS Safety Report 19988442 (Version 1)
Quarter: 2021Q4

REPORT INFORMATION
  Report Type: Spontaneous
  Country: AU (occurrence: AU)
  Receive Date: 20211022
  Receipt Date: 20211022
  Transmission Date: 20220304
  Serious: Yes (Death, Congenital Anomaly, Other)
  Sender: FDA-Public Use
  Company Number: AU-ABBVIE-21K-008-4028305-00

PATIENT

DRUGS (2)
  1. VALPROIC ACID [Suspect]
     Active Substance: VALPROIC ACID
     Indication: Maternal exposure timing unspecified
     Dosage: DURING FIRST TRIMESTER
     Route: 064
  2. LAMOTRIGINE [Suspect]
     Active Substance: LAMOTRIGINE
     Indication: Maternal exposure timing unspecified
     Route: 064

REACTIONS (3)
  - Foetal death [Fatal]
  - Spina bifida [Unknown]
  - Foetal exposure during pregnancy [Unknown]
